FAERS Safety Report 7350687 (Version 5)
Quarter: 2013Q1

REPORT INFORMATION
  Report Type: Report from Study
  Country: SE (occurrence: SE)
  Receive Date: 20100409
  Receipt Date: 20130220
  Transmission Date: 20140127
  Serious: Yes (Hospitalization)
  Sender: FDA-Public Use
  Company Number: SE-CELGENEUS-150-21880-10032681

PATIENT
  Age: 70 Year
  Sex: Female
  Weight: 63.8 kg

DRUGS (12)
  1. REVLIMID [Suspect]
     Indication: CHRONIC LYMPHOCYTIC LEUKAEMIA REFRACTORY
     Dosage: 5 MILLIGRAM
     Route: 048
     Dates: start: 20100324
  2. REVLIMID [Suspect]
     Dosage: 2.5 MILLIGRAM
     Route: 048
     Dates: start: 20100329
  3. REVLIMID [Suspect]
     Dosage: 5 MILLIGRAM
     Route: 048
     Dates: start: 20100420
  4. OMEPRAZOLE [Concomitant]
     Indication: PROPHYLAXIS
     Dosage: 20 MILLIGRAM
     Route: 065
     Dates: start: 20100329
  5. PREDNISOLON [Concomitant]
     Indication: PROPHYLAXIS
     Dosage: 10 MILLIGRAM
     Route: 065
     Dates: start: 20100324, end: 20100329
  6. PREDNISOLON [Concomitant]
     Dosage: 100 MILLIGRAM
     Route: 065
     Dates: start: 20100329
  7. ALLOPURINOL [Concomitant]
     Indication: PROPHYLAXIS
     Dosage: 300 MILLIGRAM
     Route: 065
     Dates: start: 20100321
  8. FILGRASTIM [Concomitant]
     Indication: PRODUCT USED FOR UNKNOWN INDICATION
     Dosage: .1286 MILLIGRAM
     Route: 058
     Dates: start: 20100324
  9. IMMUNOGLOBULIN HUMAN [Concomitant]
     Indication: HYPOGAMMAGLOBULINAEMIA
     Dosage: .0333 GRAM
     Route: 041
     Dates: start: 20091102
  10. MORFIN [Concomitant]
     Indication: PAIN
     Dosage: 5 MILLIGRAM
     Route: 041
     Dates: start: 20100329
  11. DEXTROPROPOXIFEN [Concomitant]
     Indication: PAIN
     Dosage: 100 MILLIGRAM
     Route: 065
     Dates: start: 20100327
  12. G-CSF [Concomitant]
     Indication: PRODUCT USED FOR UNKNOWN INDICATION
     Dosage: 300 MICROGRAM
     Route: 065

REACTIONS (1)
  - Tumour flare [Recovered/Resolved]
